FAERS Safety Report 6166547-5 (Version None)
Quarter: 2009Q2

REPORT INFORMATION
  Report Type: 
  Country: None (occurrence: None)
  Receive Date: 20090424
  Receipt Date: 20090415
  Transmission Date: 20091009
  Serious: Yes (Hospitalization)
  Sender: FDA-Public Use
  Company Number: JP-ROCHE-626027

PATIENT
  Sex: Female

DRUGS (4)
  1. DIAZEPAM [Suspect]
     Indication: PREMEDICATION
     Dosage: PREMEDICATION FOR ENDOSCOPY
     Route: 042
     Dates: start: 20090317, end: 20090317
  2. SUCRALFATE [Concomitant]
  3. ACINON [Concomitant]
  4. SOLANAX [Concomitant]

REACTIONS (1)
  - PHLEBITIS [None]
